FAERS Safety Report 6145875-3 (Version None)
Quarter: 2009Q2

REPORT INFORMATION
  Report Type: 
  Country: None (occurrence: None)
  Receive Date: 20090407
  Receipt Date: 20090325
  Transmission Date: 20091009
  Serious: Yes (Other)
  Sender: FDA-Public Use
  Company Number: JP-ROCHE-613576

PATIENT
  Sex: Male

DRUGS (3)
  1. TAMIFLU [Suspect]
     Indication: INFLUENZA
     Route: 048
     Dates: start: 20090128
  2. CRAVIT [Concomitant]
     Route: 048
     Dates: start: 20090128, end: 20090130
  3. ACETAMINOPHEN [Concomitant]
     Dosage: ORAL FORMULATION (NOT OTHERWISE SPECIFIED), TAKEN AS NEEDED
     Route: 048
     Dates: start: 20090128

REACTIONS (2)
  - LOSS OF CONSCIOUSNESS [None]
  - SYNCOPE [None]
